FAERS Safety Report 9097851 (Version 1)
Quarter: 2013Q1

REPORT INFORMATION
  Report Type: Report from Study
  Country: DE (occurrence: DE)
  Receive Date: 20130212
  Receipt Date: 20130212
  Transmission Date: 20140127
  Serious: Yes (Hospitalization)
  Sender: FDA-Public Use
  Company Number: DE-UCBSA-077356

PATIENT
  Sex: Female

DRUGS (3)
  1. CERTOLIZUMAB PEGOL [Suspect]
     Indication: RHEUMATOID ARTHRITIS
     Route: 058
     Dates: start: 201111
  2. ADALIMUMAB [Suspect]
     Dates: start: 201107, end: 201111
  3. MTX [Suspect]
     Indication: RHEUMATOID ARTHRITIS

REACTIONS (1)
  - Vestibular neuronitis [Unknown]
